FAERS Safety Report 25058504 (Version 1)
Quarter: 2025Q1

REPORT INFORMATION
  Report Type: Spontaneous
  Country: GB (occurrence: GB)
  Receive Date: 20250310
  Receipt Date: 20250310
  Transmission Date: 20250409
  Serious: Yes (Other)
  Sender: PFIZER
  Company Number: GB-MHRA-EMIS-9064-183ef4d7-9c1a-4b4d-b6bb-c04889655af7

PATIENT
  Age: 24 Year
  Sex: Female
  Weight: 41 kg

DRUGS (1)
  1. DEPO-PROVERA [Suspect]
     Active Substance: MEDROXYPROGESTERONE ACETATE
     Dates: start: 20250212, end: 20250212

REACTIONS (2)
  - Urticaria [Recovering/Resolving]
  - Hypotension [Recovered/Resolved]

NARRATIVE: CASE EVENT DATE: 20250212
